FAERS Safety Report 22090430 (Version 1)
Quarter: 2023Q1

REPORT INFORMATION
  Report Type: Spontaneous
  Country: PL (occurrence: PL)
  Receive Date: 20230313
  Receipt Date: 20230313
  Transmission Date: 20230418
  Serious: Yes (Other)
  Sender: FDA-Public Use
  Company Number: PL-AMGEN-POLSP2023033384

PATIENT
  Age: 62 Year
  Sex: Male

DRUGS (16)
  1. IRINOTECAN [Suspect]
     Active Substance: IRINOTECAN
     Indication: Colorectal cancer metastatic
     Dosage: UNK
     Route: 065
     Dates: start: 2022
  2. OXALIPLATIN [Suspect]
     Active Substance: OXALIPLATIN
     Indication: Colorectal cancer metastatic
     Dosage: 153 MILLIGRAM/120 MINUTES DAY 1?ROA-20045000
     Route: 042
     Dates: start: 202007
  3. OXALIPLATIN [Suspect]
     Active Substance: OXALIPLATIN
     Dosage: UNK?ROA-20045000
     Route: 042
     Dates: start: 202010
  4. OXALIPLATIN [Suspect]
     Active Substance: OXALIPLATIN
     Dosage: 65 MILLIGRAM/SQ. METER?ROA-20045000
     Route: 042
     Dates: start: 202010
  5. LEUCOVORIN [Suspect]
     Active Substance: LEUCOVORIN
     Indication: Colorectal cancer metastatic
     Dosage: 120 MIN DAY 2
     Route: 065
     Dates: start: 202010
  6. LEUCOVORIN [Suspect]
     Active Substance: LEUCOVORIN
     Dosage: 180MG, 120 MIN DAY 2
     Route: 065
  7. LEUCOVORIN [Suspect]
     Active Substance: LEUCOVORIN
     Dosage: 180 MILLIGRAM/INFUSION PER DAY, 120 MIN INFUSION IV DAY 1
     Route: 042
     Dates: start: 202007
  8. FLUOROURACIL [Suspect]
     Active Substance: FLUOROURACIL
     Indication: Colorectal cancer metastatic
     Dosage: UNK
     Route: 065
     Dates: start: 202010
  9. FLUOROURACIL [Suspect]
     Active Substance: FLUOROURACIL
     Dosage: 2160 MILLIGRAM, 44 HOUR INFUSION?ROA-20045000
     Route: 042
  10. FLUOROURACIL [Suspect]
     Active Substance: FLUOROURACIL
     Dosage: 720 MILLIGRAM, BOLUS IV DAY 2,?ROA-20045000
     Route: 042
  11. FLUOROURACIL [Suspect]
     Active Substance: FLUOROURACIL
     Dosage: 720 MILLIGRAM/BOLUS IV DAY 1,?ROA-20045000
     Route: 042
     Dates: start: 202007
  12. AFLIBERCEPT [Suspect]
     Active Substance: AFLIBERCEPT
     Indication: Colorectal cancer metastatic
     Dosage: UNK
     Route: 065
     Dates: start: 2022
  13. VECTIBIX [Suspect]
     Active Substance: PANITUMUMAB
     Indication: Colorectal cancer metastatic
     Dosage: UNK UNK, QD?ROA-20045000
     Route: 042
     Dates: start: 202010
  14. VECTIBIX [Suspect]
     Active Substance: PANITUMUMAB
     Dosage: 450 MILLIGRAM, Q2WK?ROA-20045000
     Route: 042
     Dates: start: 202007
  15. LEVOTHYROXINE SODIUM [Concomitant]
     Active Substance: LEVOTHYROXINE SODIUM
     Indication: Autoimmune hypothyroidism
     Dosage: UNK
     Route: 065
  16. METOPROLOL [Concomitant]
     Active Substance: METOPROLOL
     Indication: Hypertension
     Dosage: 5 MILLIGRAM, EVERY DAY IN THE MORNING
     Route: 065

REACTIONS (5)
  - Polyneuropathy [None]
  - Colorectal cancer metastatic [None]
  - Proctectomy [None]
  - Skin toxicity [None]
  - Hepatic lesion [None]

NARRATIVE: CASE EVENT DATE: 20220201
